FAERS Safety Report 16052730 (Version 2)
Quarter: 2019Q2

REPORT INFORMATION
  Report Type: Spontaneous
  Country: DE (occurrence: DE)
  Receive Date: 20190308
  Receipt Date: 20190520
  Transmission Date: 20190711
  Serious: Yes (Hospitalization, Other)
  Sender: FDA-Public Use
  Company Number: DE-009507513-1903DEU001427

PATIENT
  Age: 82 Year
  Sex: Female
  Weight: 45 kg

DRUGS (7)
  1. ZIENAM 500 [Suspect]
     Active Substance: CILASTATIN SODIUM\IMIPENEM
     Indication: WOUND INFECTION
  2. BISOPROLOL [Concomitant]
     Active Substance: BISOPROLOL
     Indication: AORTIC VALVE REPLACEMENT
     Dosage: 5 MILLIGRAM, TWICE DAILY
  3. TORSEMIDE. [Concomitant]
     Active Substance: TORSEMIDE
     Indication: ATRIAL FIBRILLATION
  4. ELIQUIS [Concomitant]
     Active Substance: APIXABAN
     Indication: ARRHYTHMIA PROPHYLAXIS
     Dosage: 5 MG, TWICE DAILY
  5. BISOPROLOL [Concomitant]
     Active Substance: BISOPROLOL
     Indication: ATRIAL FIBRILLATION
  6. ZIENAM 500 [Suspect]
     Active Substance: CILASTATIN SODIUM\IMIPENEM
     Indication: SEPSIS
     Dosage: 500MG, THRICE DAILY
     Dates: start: 20190220, end: 20190310
  7. TORSEMIDE. [Concomitant]
     Active Substance: TORSEMIDE
     Indication: AORTIC VALVE REPLACEMENT
     Dosage: 5 MILLIGRAM, ONCE DAILY

REACTIONS (2)
  - C-reactive protein increased [Recovering/Resolving]
  - Inappropriate schedule of product administration [Unknown]

NARRATIVE: CASE EVENT DATE: 20190303
